FAERS Safety Report 9409142 (Version 1)
Quarter: 2013Q3

REPORT INFORMATION
  Report Type: Report from Study
  Country: CA (occurrence: CA)
  Receive Date: 20130719
  Receipt Date: 20130719
  Transmission Date: 20140515
  Serious: Yes (Hospitalization, Other)
  Sender: FDA-Public Use
  Company Number: CA-JNJFOC-20130705298

PATIENT
  Age: 68 Year
  Sex: Male
  Weight: 56 kg

DRUGS (23)
  1. REMICADE [Suspect]
     Indication: CROHN^S DISEASE
     Route: 042
     Dates: start: 2011
  2. CELEBREX [Concomitant]
     Dosage: ONE AT BREAKFAST, ONE AT BEDTIME
     Route: 065
  3. TRAZODONE [Concomitant]
     Dosage: ONE AT BEDTIME
     Route: 065
  4. FLEXERIL [Concomitant]
     Dosage: ONE AT BEDTIME
     Route: 065
  5. METHOTREXATE [Concomitant]
     Dosage: 4 TABLETS OF 2.5 MG TWICE ON WEDNESDAY BREAKFAST AND SUPPER
     Route: 065
  6. GABAPENTIN [Concomitant]
     Dosage: ONE AT BEDTIME
     Route: 065
  7. CIPRALEX [Concomitant]
     Dosage: ONE AT BREAKFAST
     Route: 065
  8. FENTANYL [Concomitant]
     Route: 065
  9. HYDROMORPHONE [Concomitant]
     Indication: PAIN
     Dosage: WHEN NEEDED
     Route: 065
  10. SPIRIVA [Concomitant]
     Dosage: ONE A BREAKFASR WITH HAND INHALER
     Route: 065
  11. NEXIUM [Concomitant]
     Dosage: ONE AT BREAKFAST
     Route: 065
  12. CLONAZEPAM [Concomitant]
     Dosage: ONE AT BREAKFAST AND SUPPER BEDTIME
     Route: 065
  13. FERROUS GLUCONATE [Concomitant]
     Dosage: ONE AT BREAKFAST AND SUPPER BEDTIME
     Route: 065
  14. FOLIC ACID [Concomitant]
     Dosage: ONE AT BREAKFAST
  15. VITAMIN B-COMPLEX [Concomitant]
     Route: 065
  16. CALCIUM CITRATE [Concomitant]
     Route: 065
  17. VITAMIN D [Concomitant]
     Dosage: ONE AT BREAKFAST AND SUPPER
     Route: 065
  18. FUCIDIN [Concomitant]
     Dosage: AS NEEDED
     Route: 065
  19. RESTORALAX [Concomitant]
     Dosage: IN MORNING WHEN NEEDED
     Route: 065
  20. ENSURE PLUS [Concomitant]
     Route: 065
  21. QUININE SULFATE [Concomitant]
     Dosage: ONE AT BEDTIME
     Route: 065
  22. ASA [Concomitant]
     Dosage: ONE AT BEDTIME
  23. B12 INJECTION [Concomitant]
     Route: 065

REACTIONS (3)
  - Infected skin ulcer [Recovering/Resolving]
  - Hospitalisation [Unknown]
  - Decubitus ulcer [Recovering/Resolving]
